FAERS Safety Report 9206662 (Version 4)
Quarter: 2014Q1

REPORT INFORMATION
  Report Type: Report from Study
  Country: JP (occurrence: JP)
  Receive Date: 20130403
  Receipt Date: 20140114
  Transmission Date: 20141002
  Serious: Yes (Death, Life-Threatening, Other)
  Sender: FDA-Public Use
  Company Number: JP-JNJFOC-20130400077

PATIENT
  Age: 75 Year
  Sex: Female
  Weight: 57 kg

DRUGS (15)
  1. SIMPONI [Suspect]
     Indication: RHEUMATOID ARTHRITIS
     Route: 058
     Dates: start: 20120409
  2. SIMPONI [Suspect]
     Indication: RHEUMATOID ARTHRITIS
     Route: 058
     Dates: start: 20120510
  3. SIMPONI [Suspect]
     Indication: RHEUMATOID ARTHRITIS
     Route: 058
     Dates: start: 20120604, end: 20120604
  4. GLORIAMIN [Concomitant]
     Indication: PROPHYLAXIS
     Route: 048
  5. PREDONINE [Concomitant]
     Indication: RHEUMATOID ARTHRITIS
     Route: 048
     Dates: start: 20120409, end: 20120424
  6. PREDONINE [Concomitant]
     Indication: RHEUMATOID ARTHRITIS
     Route: 048
     Dates: start: 20120529, end: 20120605
  7. LOXONIN [Concomitant]
     Indication: PROPHYLAXIS
     Route: 062
     Dates: start: 20120214, end: 20120712
  8. LOXONIN [Concomitant]
     Indication: PROPHYLAXIS
     Route: 062
     Dates: start: 20120421, end: 20120605
  9. LOXONIN [Concomitant]
     Indication: RHEUMATOID ARTHRITIS
     Route: 062
     Dates: start: 20120421, end: 20120605
  10. LOXONIN [Concomitant]
     Indication: RHEUMATOID ARTHRITIS
     Route: 062
     Dates: start: 20120214, end: 20120712
  11. FUNGIZONE [Concomitant]
     Indication: PROPHYLAXIS
     Route: 048
  12. ISODINE [Concomitant]
     Indication: PROPHYLAXIS
     Route: 065
  13. CALONAL [Concomitant]
     Indication: FEELING HOT
     Route: 065
     Dates: start: 20120417, end: 20120612
  14. CALONAL [Concomitant]
     Indication: MYALGIA
     Route: 065
     Dates: start: 20120417, end: 20120612
  15. CALONAL [Concomitant]
     Indication: HEADACHE
     Route: 065
     Dates: start: 20120417, end: 20120612

REACTIONS (5)
  - Rheumatoid arthritis [Fatal]
  - Melaena [Fatal]
  - Insomnia [Unknown]
  - Hallucination [Unknown]
  - Pain in extremity [Unknown]
